FAERS Safety Report 5727791-1 (Version None)
Quarter: 2008Q2

REPORT INFORMATION
  Report Type: 
  Country: None (occurrence: None)
  Receive Date: 20080505
  Receipt Date: 20080428
  Transmission Date: 20081010
  Serious: Yes (Death, Hospitalization)
  Sender: FDA-Public Use
  Company Number: US-PFIZER INC-2008015754

PATIENT
  Sex: Male

DRUGS (1)
  1. ZYVOX [Suspect]
     Indication: INFECTION
     Dates: start: 20080218, end: 20080218

REACTIONS (5)
  - CARDIAC FAILURE CONGESTIVE [None]
  - DEATH [None]
  - DYSPNOEA [None]
  - LUNG INFECTION [None]
  - URINARY TRACT INFECTION [None]
